FAERS Safety Report 5615509-2 (Version None)
Quarter: 2008Q1

REPORT INFORMATION
  Report Type: 
  Country: None (occurrence: None)
  Receive Date: 20080206
  Receipt Date: 20080205
  Transmission Date: 20080703
  Serious: Yes (Other)
  Sender: FDA-Public Use
  Company Number: A0707423A

PATIENT
  Age: 40 Year
  Sex: Female

DRUGS (2)
  1. ALLI [Suspect]
     Route: 048
     Dates: start: 20080130, end: 20080204
  2. NO CONCURRENT MEDICATION [Concomitant]

REACTIONS (5)
  - CONDITION AGGRAVATED [None]
  - FLATULENCE [None]
  - GASTROENTERITIS VIRAL [None]
  - NAUSEA [None]
  - UTERINE SPASM [None]
